FAERS Safety Report 23697945 (Version 3)
Quarter: 2024Q2

REPORT INFORMATION
  Report Type: Spontaneous
  Country: US (occurrence: US)
  Receive Date: 20240402
  Receipt Date: 20240419
  Transmission Date: 20240716
  Serious: No
  Sender: FDA-Public Use
  Company Number: US-002147023-NVSC2024US070156

PATIENT

DRUGS (1)
  1. COSENTYX [Suspect]
     Active Substance: SECUKINUMAB
     Indication: Product used for unknown indication
     Dosage: UNK UNK, QW
     Route: 065

REACTIONS (4)
  - Incorrect dose administered by product [Unknown]
  - Arthralgia [Unknown]
  - Asthenia [Unknown]
  - Limb discomfort [Unknown]
